FAERS Safety Report 7707849-8 (Version None)
Quarter: 2011Q3

REPORT INFORMATION
  Report Type: 
  Country: None (occurrence: None)
  Receive Date: 20110824
  Receipt Date: 20110817
  Transmission Date: 20111222
  Serious: Yes (Other)
  Sender: FDA-Public Use
  Company Number: PHHY2011GB73574

PATIENT
  Sex: Male

DRUGS (3)
  1. DOXAZOSIN MESYLATE [Suspect]
     Route: 065
  2. LISINOPRIL [Interacting]
     Route: 065
  3. ABILIFY [Interacting]
     Dosage: 20 MG/DAY
     Route: 065

REACTIONS (1)
  - DRUG INTERACTION [None]
